FAERS Safety Report 11024300 (Version 1)
Quarter: 2015Q2

REPORT INFORMATION
  Report Type: Report from Study
  Country: US (occurrence: US)
  Receive Date: 20150414
  Receipt Date: 20150414
  Transmission Date: 20150821
  Serious: No
  Sender: FDA-Public Use
  Company Number: US-AMGEN-USASL2015034002

PATIENT
  Age: 44 Year
  Sex: Female
  Weight: 114.74 kg

DRUGS (1)
  1. ENBREL [Suspect]
     Active Substance: ETANERCEPT
     Indication: ANKYLOSING SPONDYLITIS
     Dosage: 50 MG, QWK
     Route: 058
     Dates: start: 2010

REACTIONS (9)
  - Impaired healing [Unknown]
  - Oedema peripheral [Unknown]
  - Dyspnoea [Unknown]
  - Skin ulcer [Unknown]
  - Alopecia [Unknown]
  - Diarrhoea [Unknown]
  - Menstrual disorder [Unknown]
  - Pyrexia [Unknown]
  - Vomiting [Unknown]

NARRATIVE: CASE EVENT DATE: 2010
